FAERS Safety Report 8216104-1 (Version None)
Quarter: 2012Q1

REPORT INFORMATION
  Report Type: 
  Country: None (occurrence: None)
  Receive Date: 20120316
  Receipt Date: 20120307
  Transmission Date: 20120608
  Serious: Yes (Other)
  Sender: FDA-Public Use
  Company Number: US-PFIZER INC-2012061562

PATIENT
  Sex: Female
  Weight: 62 kg

DRUGS (2)
  1. IMC-A12 [Suspect]
     Indication: UTERINE NEOPLASM
     Dosage: 6 MG/KG, WEEKLY
     Route: 042
     Dates: start: 20101006
  2. TEMSIROLIMUS [Suspect]
     Indication: UTERINE NEOPLASM
     Dosage: 25 MG, WEEKLY
     Route: 042
     Dates: start: 20101006

REACTIONS (3)
  - HYPERTRIGLYCERIDAEMIA [None]
  - MUCOSAL INFLAMMATION [None]
  - PROCTITIS [None]
